FAERS Safety Report 5286491-5 (Version None)
Quarter: 2007Q2

REPORT INFORMATION
  Report Type: 
  Country: None (occurrence: None)
  Receive Date: 20070404
  Receipt Date: 20070330
  Transmission Date: 20071010
  Serious: No
  Sender: FDA-Public Use
  Company Number: 2006UW08038

PATIENT
  Age: 431 Month
  Sex: Male
  Weight: 89.1 kg

DRUGS (5)
  1. SEROQUEL [Suspect]
     Indication: SCHIZOPHRENIA
     Route: 048
     Dates: start: 20050701, end: 20070111
  2. SEROQUEL [Suspect]
     Indication: BIPOLAR DISORDER
     Route: 048
     Dates: start: 20050701, end: 20070111
  3. SEROQUEL [Suspect]
     Route: 048
     Dates: start: 20070111
  4. SEROQUEL [Suspect]
     Route: 048
     Dates: start: 20070111
  5. WELLBUTRIN [Concomitant]
     Dates: start: 20060101

REACTIONS (2)
  - DIABETES MELLITUS [None]
  - INJURY [None]
